FAERS Safety Report 5301488-4 (Version None)
Quarter: 2007Q2

REPORT INFORMATION
  Report Type: 
  Country: None (occurrence: None)
  Receive Date: 20070412
  Receipt Date: 20070409
  Transmission Date: 20071010
  Serious: Yes (Other)
  Sender: FDA-Public Use
  Company Number: 002#1#2007-00041

PATIENT
  Age: 61 Year
  Sex: Male
  Weight: 72.5755 kg

DRUGS (2)
  1. TRILYTE-WITH-FLAVOR-PACKS (POLYETHYLENE GLYCO 3350) [Suspect]
     Indication: COLONOSCOPY
     Dosage: 4L, 1ONCE, ORAL
     Route: 048
     Dates: start: 20070206, end: 20070206
  2. ASPIRIN [Concomitant]

REACTIONS (11)
  - BALANCE DISORDER [None]
  - DEAFNESS NEUROSENSORY [None]
  - DIZZINESS [None]
  - EAR DISORDER [None]
  - LABYRINTHITIS [None]
  - MIDDLE EAR EFFUSION [None]
  - SINUS DISORDER [None]
  - SNEEZING [None]
  - TINNITUS [None]
  - VERTIGO [None]
  - VOMITING [None]
